FAERS Safety Report 10077430 (Version 1)
Quarter: 2014Q2

REPORT INFORMATION
  Report Type: Spontaneous
  Country: US (occurrence: US)
  Receive Date: 20140414
  Receipt Date: 20140414
  Transmission Date: 20141212
  Serious: No
  Sender: FDA-Public Use
  Company Number: US-BANPHARM-20131513

PATIENT
  Age: 65 Year
  Sex: Female

DRUGS (6)
  1. NAPROXEN SODIUM 220 MG [Suspect]
     Indication: INFLAMMATION
     Dosage: 400 MG, PRN,
     Route: 048
     Dates: start: 2012
  2. IBUPROFEN [Concomitant]
  3. SYSTEMIC ENZYME [Concomitant]
     Dates: start: 20130715
  4. GABAPENTIN [Concomitant]
  5. TRAMADOL [Concomitant]
  6. PERCOCET [Concomitant]

REACTIONS (2)
  - Abdominal pain upper [Recovered/Resolved]
  - Expired product administered [Unknown]
